FAERS Safety Report 9591649 (Version 2)
Quarter: 2014Q3

REPORT INFORMATION
  Report Type: Spontaneous
  Country: US (occurrence: US)
  Receive Date: 20131003
  Receipt Date: 20140828
  Transmission Date: 20150326
  Serious: No
  Sender: FDA-Public Use
  Company Number: US-AMGEN-USASP2012082197

PATIENT
  Age: 39 Year
  Sex: Female
  Weight: 81.63 kg

DRUGS (1)
  1. ENBREL [Suspect]
     Active Substance: ETANERCEPT
     Indication: RHEUMATOID ARTHRITIS
     Dosage: 50 MG, QWK
     Route: 058
     Dates: start: 20120301

REACTIONS (8)
  - Urticaria [Not Recovered/Not Resolved]
  - Fatigue [Unknown]
  - Weight decreased [Recovered/Resolved]
  - Pruritus [Unknown]
  - Hepatic enzyme increased [Not Recovered/Not Resolved]
  - Hiatus hernia [Recovered/Resolved]
  - Injection site bruising [Unknown]
  - Injection site erythema [Not Recovered/Not Resolved]

NARRATIVE: CASE EVENT DATE: 20120301
